FAERS Safety Report 17314421 (Version 4)
Quarter: 2020Q1

REPORT INFORMATION
  Report Type: Spontaneous
  Country: BR (occurrence: BR)
  Receive Date: 20200124
  Receipt Date: 20200304
  Transmission Date: 20200409
  Serious: Yes (Other)
  Sender: FDA-Public Use
  Company Number: BR-AMGEN-BRASP2020010213

PATIENT
  Age: 50 Year
  Sex: Female

DRUGS (2)
  1. ENBREL [Suspect]
     Active Substance: ETANERCEPT
     Dosage: UNK UNK, QWK
     Route: 065
  2. ENBREL [Suspect]
     Active Substance: ETANERCEPT
     Indication: PRODUCT USED FOR UNKNOWN INDICATION
     Dosage: 50 MILLIGRAM EVERY 15 DAYS
     Route: 065
     Dates: start: 2016

REACTIONS (6)
  - Off label use [Unknown]
  - Ear infection [Unknown]
  - Lung disorder [Unknown]
  - Autoimmune disorder [Unknown]
  - Pain [Unknown]
  - Pharyngeal abscess [Unknown]

NARRATIVE: CASE EVENT DATE: 2016
